FAERS Safety Report 8429717-9 (Version None)
Quarter: 2012Q2

REPORT INFORMATION
  Report Type: 
  Country: None (occurrence: None)
  Receive Date: 20120604
  Receipt Date: 20120518
  Transmission Date: 20120825
  Serious: Yes (Other)
  Sender: FDA-Public Use
  Company Number: FK201201458

PATIENT
  Age: 28 Year

DRUGS (1)
  1. SODIUM CHLORIDE INJ [Suspect]
     Dosage: INTRAVENOUS (NOT OTHERWISE SPECIFIED)
     Route: 042
     Dates: start: 20120304, end: 20120304

REACTIONS (2)
  - IMPAIRED HEALING [None]
  - INJECTION SITE DISCOLOURATION [None]
